FAERS Safety Report 25612466 (Version 2)
Quarter: 2025Q3

REPORT INFORMATION
  Report Type: Spontaneous
  Country: US (occurrence: US)
  Receive Date: 20250728
  Receipt Date: 20250816
  Transmission Date: 20251020
  Serious: Yes (Other)
  Sender: UCB
  Company Number: US-UCBSA-2025045419

PATIENT
  Age: 51 Year
  Sex: Female
  Weight: 73.57 kg

DRUGS (13)
  1. CIMZIA [Suspect]
     Active Substance: CERTOLIZUMAB PEGOL
     Indication: Rheumatoid arthritis
     Dosage: 400 MILLIGRAM, EV 2 WEEKS(QOW)
     Route: 058
     Dates: start: 2022
  2. CIMZIA [Suspect]
     Active Substance: CERTOLIZUMAB PEGOL
     Dosage: 400 MILLIGRAM, EV 4 WEEKS
     Route: 058
  3. ZYRTEC [Concomitant]
     Active Substance: CETIRIZINE HYDROCHLORIDE
     Indication: Product used for unknown indication
  4. CALCIUM [Concomitant]
     Active Substance: CALCIUM
     Indication: Product used for unknown indication
  5. VITAMINS [Concomitant]
     Active Substance: VITAMINS
     Indication: Product used for unknown indication
  6. TRAZODONE HCL [Concomitant]
     Active Substance: TRAZODONE HYDROCHLORIDE
     Indication: Product used for unknown indication
  7. VENLAFAXINE HCL [Concomitant]
     Active Substance: VENLAFAXINE HYDROCHLORIDE
     Indication: Product used for unknown indication
  8. SINGULAIR [Concomitant]
     Active Substance: MONTELUKAST SODIUM
     Indication: Hypersensitivity
     Dosage: 10 MILLIGRAM, ONCE DAILY (QD)
     Route: 048
     Dates: start: 2008
  9. ZEPAC [HEPARIN CALCIUM] [Concomitant]
     Indication: Hypersensitivity
     Dosage: 10 MILLIGRAM, ONCE DAILY (QD)
     Route: 048
     Dates: start: 2004
  10. EFFEXOR [Concomitant]
     Active Substance: VENLAFAXINE HYDROCHLORIDE
     Indication: Depression
     Dosage: 150 MILLIGRAM, ONCE DAILY (QD)
     Route: 048
     Dates: start: 2010
  11. TRAZODONE [Concomitant]
     Active Substance: TRAZODONE HYDROCHLORIDE
     Indication: Sleep disorder
     Dosage: 75 MILLIGRAM, ONCE DAILY (QD)
     Route: 048
     Dates: start: 2008
  12. QULIPTA [Concomitant]
     Active Substance: ATOGEPANT
     Indication: Migraine
     Dosage: 60 MILLIGRAM, ONCE DAILY (QD)
     Route: 048
     Dates: start: 2023
  13. NURTEC ODT [Concomitant]
     Active Substance: RIMEGEPANT SULFATE
     Indication: Migraine
     Route: 048

REACTIONS (3)
  - Rheumatoid arthritis [Recovering/Resolving]
  - Therapy interrupted [Unknown]
  - Product distribution issue [Unknown]

NARRATIVE: CASE EVENT DATE: 20250201
